FAERS Safety Report 23546404 (Version 1)
Quarter: 2024Q1

REPORT INFORMATION
  Report Type: Report from Study
  Country: CA (occurrence: CA)
  Receive Date: 20240220
  Receipt Date: 20240220
  Transmission Date: 20240410
  Serious: Yes (Other)
  Sender: FDA-Public Use
  Company Number: CA-JNJFOC-20240235875

PATIENT
  Age: 38 Year
  Sex: Male

DRUGS (1)
  1. REMICADE [Suspect]
     Active Substance: INFLIXIMAB
     Indication: Crohn^s disease
     Route: 041
     Dates: start: 20080917, end: 20240103

REACTIONS (2)
  - Beta haemolytic streptococcal infection [Not Recovered/Not Resolved]
  - Erythema infectiosum [Recovering/Resolving]

NARRATIVE: CASE EVENT DATE: 20240210
